FAERS Safety Report 14068467 (Version 1)
Quarter: 2017Q4

REPORT INFORMATION
  Report Type: Spontaneous
  Country: US (occurrence: US)
  Receive Date: 20171010
  Receipt Date: 20171010
  Transmission Date: 20180321
  Serious: No
  Sender: FDA-Public Use
  Company Number: None

PATIENT
  Age: 45 Year
  Sex: Female
  Weight: 67.5 kg

DRUGS (4)
  1. LEVOFLOXACIN 500 MG TAB [Suspect]
     Active Substance: LEVOFLOXACIN
     Indication: BRONCHITIS
     Dosage: ?          QUANTITY:10 TABLET(S);?
     Route: 048
     Dates: start: 20171004, end: 20171005
  2. CLARITIN [Concomitant]
     Active Substance: LORATADINE
  3. ADVIL [Concomitant]
     Active Substance: IBUPROFEN
  4. 81 MG ASPIRIN [Concomitant]
     Active Substance: ASPIRIN

REACTIONS (3)
  - Joint stiffness [None]
  - Joint swelling [None]
  - Arthralgia [None]

NARRATIVE: CASE EVENT DATE: 20171006
